FAERS Safety Report 4896046-X (Version None)
Quarter: 2005Q4

REPORT INFORMATION
  Report Type: 
  Country: None (occurrence: None)
  Receive Date: 20051220
  Receipt Date: 20050518
  Transmission Date: 20060501
  Serious: Yes (Hospitalization)
  Sender: FDA-Public Use
  Company Number: US134438

PATIENT
  Age: 63 Year
  Sex: Male

DRUGS (11)
  1. ENBREL [Suspect]
     Indication: RHEUMATOID ARTHRITIS
     Dosage: 25 MG, 2 IN 1 WEEKS, SC
     Route: 058
     Dates: start: 19990901, end: 20030701
  2. ENBREL [Suspect]
     Indication: RHEUMATOID ARTHRITIS
     Dosage: 25 MG, 2 IN 1 WEEKS, SC
     Route: 058
     Dates: start: 20030801
  3. METHOTREXATE [Concomitant]
  4. PREDNISONE [Concomitant]
  5. ALENDRONATE SODIUM [Concomitant]
  6. FOLIC ACID [Concomitant]
  7. AMITRIPTYLINE HCL [Concomitant]
  8. CLOPIDOGREL [Concomitant]
  9. POTASSIUM CITRATE [Concomitant]
  10. TRIAMTERENE AND HYDROCHLOROTHIAZIDE [Concomitant]
  11. ACETAMINOPHEN [Concomitant]

REACTIONS (2)
  - ARTHRITIS BACTERIAL [None]
  - LISTERIOSIS [None]
